FAERS Safety Report 5366514-5 (Version None)
Quarter: 2007Q2

REPORT INFORMATION
  Report Type: 
  Country: None (occurrence: None)
  Receive Date: 20070622
  Receipt Date: 20070611
  Transmission Date: 20071010
  Serious: Yes (Hospitalization)
  Sender: FDA-Public Use
  Company Number: JP-AMGEN-US215400

PATIENT
  Sex: Female
  Weight: 33 kg

DRUGS (18)
  1. ENBREL [Suspect]
     Indication: RHEUMATOID ARTHRITIS
     Route: 058
     Dates: start: 20050513, end: 20070301
  2. PREDONINE [Concomitant]
     Indication: RHEUMATOID ARTHRITIS
     Route: 048
     Dates: start: 20030701
  3. PREDNISOLONE [Concomitant]
     Dosage: UNKNOWN
     Route: 048
  4. SELBEX [Concomitant]
     Dosage: UNKNOWN
     Route: 048
  5. GASLON [Concomitant]
     Dosage: UNKNOWN
     Route: 048
  6. BONALON [Concomitant]
     Dosage: UNKNOWN
     Route: 048
  7. TAKEPRON [Concomitant]
     Dosage: UNKNOWN
     Route: 048
  8. STARLIX [Concomitant]
     Dosage: UNKNOWN
     Route: 048
  9. AMLODIN [Concomitant]
     Dosage: UNKNOWN
     Route: 048
  10. LOXONIN [Concomitant]
     Dosage: UNKNOWN
     Route: 048
  11. GASTER [Concomitant]
     Dosage: UNKNOWN
     Route: 048
  12. THYRADIN [Concomitant]
     Dosage: UNKNOWN
     Route: 048
  13. CATLEP [Concomitant]
     Dosage: UNKNOWN
  14. AMOBAN [Concomitant]
     Dosage: UNKNOWN
     Route: 048
  15. FERROMIA [Concomitant]
     Dosage: UNKNOWN
     Route: 048
  16. CLARITHROMYCIN [Concomitant]
     Dosage: UNKNOWN
     Route: 048
  17. CAMLEED [Concomitant]
     Dosage: UNKNOWN
     Route: 048
  18. BUCILLAMINE [Concomitant]
     Dosage: UNKNOWN
     Route: 048

REACTIONS (1)
  - PNEUMOCYSTIS JIROVECI PNEUMONIA [None]
